FAERS Safety Report 10065075 (Version 2)
Quarter: 2015Q2

REPORT INFORMATION
  Report Type: Spontaneous
  Country: US (occurrence: US)
  Receive Date: 20140408
  Receipt Date: 20150612
  Transmission Date: 20150821
  Serious: Yes (Death, Life-Threatening, Hospitalization, Other)
  Sender: FDA-Public Use
  Company Number: US-MERCK-1404USA004097

PATIENT
  Sex: Male
  Weight: 83.9 kg

DRUGS (1)
  1. JANUVIA [Suspect]
     Active Substance: SITAGLIPTIN PHOSPHATE
     Indication: TYPE 2 DIABETES MELLITUS
     Dosage: 100 MG, QD
     Route: 048
     Dates: start: 20100804, end: 20131106

REACTIONS (19)
  - Hyperbilirubinaemia [Unknown]
  - Renal cyst [Unknown]
  - Elbow operation [Unknown]
  - Melanocytic naevus [Unknown]
  - Hernia repair [Unknown]
  - Adenocarcinoma pancreas [Fatal]
  - Cerebrovascular accident [Unknown]
  - Pancreatitis [Unknown]
  - Anuria [Unknown]
  - Pancreatic necrosis [Unknown]
  - Cough [Unknown]
  - Neoplasm [Unknown]
  - Inguinal hernia [Recovered/Resolved]
  - Metastases to liver [Unknown]
  - Hepatitis [Unknown]
  - Hepatic cirrhosis [Unknown]
  - Bile duct stent insertion [Unknown]
  - Hypertension [Recovered/Resolved]
  - Hypercholesterolaemia [Recovered/Resolved]

NARRATIVE: CASE EVENT DATE: 20130814
